FAERS Safety Report 25943911 (Version 1)
Quarter: 2025Q4

REPORT INFORMATION
  Report Type: Spontaneous
  Country: US (occurrence: US)
  Receive Date: 20251021
  Receipt Date: 20251021
  Transmission Date: 20260117
  Serious: Yes (Other)
  Sender: ROCHE
  Company Number: US-ROCHE-10000413860

PATIENT
  Age: 62 Year
  Sex: Male

DRUGS (1)
  1. ENTRECTINIB [Suspect]
     Active Substance: ENTRECTINIB
     Indication: Colorectal adenocarcinoma
     Route: 048

REACTIONS (2)
  - Colitis [Unknown]
  - Intestinal perforation [Unknown]
